FAERS Safety Report 7630031-X (Version None)
Quarter: 2011Q3

REPORT INFORMATION
  Report Type: 
  Country: None (occurrence: None)
  Receive Date: 20110715
  Receipt Date: 20110621
  Transmission Date: 20111222
  Serious: Yes (Death)
  Sender: FDA-Public Use
  Company Number: JP-2011-0462

PATIENT
  Sex: Male

DRUGS (2)
  1. CISPLATIN [Concomitant]
  2. NAVELBINE [Suspect]
     Indication: NON-SMALL CELL LUNG CANCER
     Dosage: 20 MG/M2 IV
     Route: 042

REACTIONS (1)
  - SUDDEN DEATH [None]
